FAERS Safety Report 16662689 (Version 1)
Quarter: 2019Q3

REPORT INFORMATION
  Report Type: Report from Study
  Country: US (occurrence: US)
  Receive Date: 20190802
  Receipt Date: 20190802
  Transmission Date: 20191004
  Serious: No
  Sender: FDA-Public Use
  Company Number: US-EXELIXIS-CABO-19019515

PATIENT
  Age: 58 Year
  Sex: Male
  Weight: 79.37 kg

DRUGS (27)
  1. CABOMETYX [Suspect]
     Active Substance: CABOZANTINIB S-MALATE
     Indication: RENAL CELL CARCINOMA
     Dosage: 60 MG, QD
     Route: 048
     Dates: start: 20190125, end: 20190301
  2. CINNAMON. [Concomitant]
     Active Substance: CINNAMON
  3. VITAMIN B12 [Concomitant]
     Active Substance: CYANOCOBALAMIN
  4. CLOTRIMAZOLE. [Concomitant]
     Active Substance: CLOTRIMAZOLE
  5. NYSTATIN. [Concomitant]
     Active Substance: NYSTATIN
  6. OSELTAMIVIR [Concomitant]
     Active Substance: OSELTAMIVIR
  7. VITAMIN E [Concomitant]
     Active Substance: .ALPHA.-TOCOPHEROL
  8. ZINC. [Concomitant]
     Active Substance: ZINC
  9. FLUCONAZOLE. [Concomitant]
     Active Substance: FLUCONAZOLE
  10. METHYLPREDNISOLONE. [Concomitant]
     Active Substance: METHYLPREDNISOLONE
  11. CIPROFLOXACIN. [Concomitant]
     Active Substance: CIPROFLOXACIN
  12. TURMERIC [Concomitant]
     Active Substance: HERBALS\TURMERIC
  13. MEGESTROL [Concomitant]
     Active Substance: MEGESTROL
  14. FENTANYL. [Concomitant]
     Active Substance: FENTANYL
  15. COENZYME Q10 [Concomitant]
     Active Substance: UBIDECARENONE
  16. GABAPENTIN. [Concomitant]
     Active Substance: GABAPENTIN
  17. L-CARNITINE [Concomitant]
     Active Substance: LEVOCARNITINE
  18. DEXAMETHASONE. [Concomitant]
     Active Substance: DEXAMETHASONE
  19. MORPHINE SULFATE. [Concomitant]
     Active Substance: MORPHINE SULFATE
  20. METRONIDAZOLE. [Concomitant]
     Active Substance: METRONIDAZOLE
  21. GREEN TEA EXTRACT [Concomitant]
  22. LIDOCAINE. [Concomitant]
     Active Substance: LIDOCAINE
  23. VITAMIN D3 [Concomitant]
     Active Substance: CHOLECALCIFEROL
  24. DOK [Concomitant]
     Active Substance: DOCUSATE SODIUM
  25. FISH OIL [Concomitant]
     Active Substance: FISH OIL
  26. LEVOFLOXACIN. [Concomitant]
     Active Substance: LEVOFLOXACIN
  27. OXYCODONE AND ACETAMINOPHEN [Concomitant]
     Active Substance: ACETAMINOPHEN\OXYCODONE HYDROCHLORIDE

REACTIONS (1)
  - Drug intolerance [Unknown]

NARRATIVE: CASE EVENT DATE: 20190301
